FAERS Safety Report 18976096 (Version 1)
Quarter: 2021Q1

REPORT INFORMATION
  Report Type: Spontaneous
  Country: AT (occurrence: AT)
  Receive Date: 20210305
  Receipt Date: 20210305
  Transmission Date: 20210420
  Serious: Yes (Hospitalization)
  Sender: FDA-Public Use
  Company Number: AT-TEVA-2021-AT-1886530

PATIENT
  Age: 41 Year
  Sex: Male

DRUGS (1)
  1. NAPROBENE 250MG ? FILMTABLETTEN [Suspect]
     Active Substance: NAPROXEN
     Dosage: ACCORDING TO SPECIALIST INFORMATION
     Dates: start: 20200730, end: 20200730

REACTIONS (7)
  - Hypotension [Recovered/Resolved]
  - Dizziness [Recovered/Resolved]
  - Vomiting [Recovered/Resolved]
  - Angioedema [Recovered/Resolved]
  - Tachycardia [Recovered/Resolved]
  - Type I hypersensitivity [Recovered/Resolved]
  - Paraesthesia [Recovered/Resolved]

NARRATIVE: CASE EVENT DATE: 20200730
